FAERS Safety Report 16089192 (Version 2)
Quarter: 2019Q1

REPORT INFORMATION
  Report Type: Spontaneous
  Country: FR (occurrence: FR)
  Receive Date: 20190319
  Receipt Date: 20190326
  Transmission Date: 20190418
  Serious: Yes (Hospitalization)
  Sender: FDA-Public Use
  Company Number: FR-TEVA-2019-FR-1023218

PATIENT
  Age: 48 Year
  Sex: Male

DRUGS (7)
  1. NORADRENALINE [Suspect]
     Active Substance: NOREPINEPHRINE
     Indication: SEPTIC SHOCK
     Route: 065
  2. GENTAMICIN. [Suspect]
     Active Substance: GENTAMICIN
     Indication: CAPNOCYTOPHAGA INFECTION
  3. AMOXICILLIN W/CLAVULANIC ACID [Suspect]
     Active Substance: AMOXICILLIN\CLAVULANIC ACID
     Indication: CAPNOCYTOPHAGA INFECTION
  4. CLINDAMYCIN. [Suspect]
     Active Substance: CLINDAMYCIN
     Indication: SEPTIC SHOCK
     Route: 065
  5. AMOXICILLIN W/CLAVULANIC ACID [Suspect]
     Active Substance: AMOXICILLIN\CLAVULANIC ACID
     Indication: SEPTIC SHOCK
     Route: 065
  6. GENTAMICIN. [Suspect]
     Active Substance: GENTAMICIN
     Indication: SEPTIC SHOCK
     Route: 065
  7. CLINDAMYCIN. [Suspect]
     Active Substance: CLINDAMYCIN
     Indication: CAPNOCYTOPHAGA INFECTION

REACTIONS (1)
  - Drug ineffective [Unknown]
